FAERS Safety Report 7103881-6 (Version None)
Quarter: 2010Q4

REPORT INFORMATION
  Report Type: 
  Country: None (occurrence: None)
  Receive Date: 20101115
  Receipt Date: 20101110
  Transmission Date: 20110411
  Serious: Yes (Death, Other)
  Sender: FDA-Public Use
  Company Number: PH-PFIZER INC-2010128519

PATIENT

DRUGS (1)
  1. LYRICA [Suspect]
     Indication: NEURALGIA
     Dosage: UNK

REACTIONS (5)
  - ATAXIA [None]
  - CEREBELLAR SYNDROME [None]
  - COLON CANCER [None]
  - DEATH [None]
  - NYSTAGMUS [None]
